FAERS Safety Report 20760384 (Version 1)
Quarter: 2022Q2

REPORT INFORMATION
  Report Type: Spontaneous
  Country: US (occurrence: US)
  Receive Date: 20220428
  Receipt Date: 20220428
  Transmission Date: 20220721
  Serious: Yes (Life-Threatening, Hospitalization, Other)
  Sender: FDA-Public Use
  Company Number: US-VELOXIS PHARMACEUTICALS-2022VELUS-000275

PATIENT
  Age: 47 Year
  Sex: Male

DRUGS (2)
  1. TACROLIMUS [Suspect]
     Active Substance: TACROLIMUS
     Indication: Prophylaxis against transplant rejection
     Dosage: UNK
  2. TACROLIMUS [Suspect]
     Active Substance: TACROLIMUS
     Indication: Prophylaxis against transplant rejection

REACTIONS (12)
  - Chronic kidney disease [Recovering/Resolving]
  - Complications of transplanted heart [Recovered/Resolved]
  - Coronary artery disease [Recovered/Resolved]
  - Complications of transplanted kidney [Unknown]
  - Atrial fibrillation [Unknown]
  - Renal graft infection [Unknown]
  - Cardiac failure acute [Recovered/Resolved]
  - Right ventricular dysfunction [Recovered/Resolved]
  - Metastatic neoplasm [Unknown]
  - Phaeochromocytoma [Unknown]
  - Hypergammaglobulinaemia benign monoclonal [Unknown]
  - Off label use [Unknown]
